FAERS Safety Report 20364369 (Version 1)
Quarter: 2022Q1

REPORT INFORMATION
  Report Type: Spontaneous
  Country: US (occurrence: None)
  Receive Date: 20220121
  Receipt Date: 20220121
  Transmission Date: 20220423
  Serious: No
  Sender: FDA-Public Use
  Company Number: None

PATIENT
  Sex: Female

DRUGS (1)
  1. PRIVIGEN [Suspect]
     Active Substance: HUMAN IMMUNOGLOBULIN G
     Indication: Immunodeficiency common variable
     Dosage: OTHER STRENGTH : 20GM/200ML;?OTHER FREQUENCY : EVERY 3 WEEKS;?
     Route: 042
     Dates: start: 20220106

REACTIONS (6)
  - Exposure to SARS-CoV-2 [None]
  - Infusion related reaction [None]
  - Rash pruritic [None]
  - Skin burning sensation [None]
  - Headache [None]
  - Pyrexia [None]
